FAERS Safety Report 24433110 (Version 2)
Quarter: 2025Q4

REPORT INFORMATION
  Report Type: Spontaneous
  Country: EU (occurrence: EU)
  Receive Date: 20241014
  Receipt Date: 20251209
  Transmission Date: 20260118
  Serious: Yes (Hospitalization)
  Sender: ELI LILLY AND COMPANY
  Company Number: EU-Merck Healthcare KGaA-2024052740

PATIENT
  Sex: Female

DRUGS (1)
  1. ERBITUX [Suspect]
     Active Substance: CETUXIMAB
     Indication: Colorectal cancer metastatic
     Dosage: UNK UNK, UNKNOWN
     Route: 042

REACTIONS (3)
  - Hypotension [Unknown]
  - Loss of consciousness [Unknown]
  - Infusion related reaction [Unknown]

NARRATIVE: CASE EVENT DATE: 20241001
